FAERS Safety Report 5025192-5 (Version None)
Quarter: 2006Q2

REPORT INFORMATION
  Report Type: 
  Country: None (occurrence: None)
  Receive Date: 20060613
  Receipt Date: 20060517
  Transmission Date: 20061013
  Serious: Yes (Hospitalization, Disabling)
  Sender: FDA-Public Use
  Company Number: JP-JPN-A200601610

PATIENT
  Age: 75 Year
  Sex: Female

DRUGS (8)
  1. VALTREX [Suspect]
     Indication: HERPES ZOSTER
     Dosage: 500MG THREE TIMES PER DAY
     Route: 048
     Dates: start: 20060506, end: 20060507
  2. NIVADIL [Concomitant]
     Indication: HYPERTENSION
     Dosage: 4MG PER DAY
     Route: 048
  3. DIOVAN [Concomitant]
     Indication: HYPERTENSION
     Dosage: 80MG PER DAY
     Route: 048
  4. PLATIBIT [Concomitant]
     Indication: OSTEOPOROSIS
     Dosage: .25MG PER DAY
     Route: 048
  5. PROTECADIN [Concomitant]
     Indication: GASTRIC ULCER
     Dosage: 20MG PER DAY
     Route: 048
  6. ALLOZYM [Concomitant]
     Dosage: 100MG PER DAY
     Route: 048
  7. CALTAN [Concomitant]
     Dosage: 1500MG PER DAY
     Route: 048
  8. DAIO-KANZO-TO [Concomitant]
     Indication: CONSTIPATION
     Route: 048
     Dates: end: 20060507

REACTIONS (4)
  - DEPRESSED LEVEL OF CONSCIOUSNESS [None]
  - ORAL INTAKE REDUCED [None]
  - OVERDOSE [None]
  - SOMNOLENCE [None]
